FAERS Safety Report 7636449-3 (Version None)
Quarter: 2011Q3

REPORT INFORMATION
  Report Type: 
  Country: None (occurrence: None)
  Receive Date: 20110726
  Receipt Date: 20110722
  Transmission Date: 20111222
  Serious: Yes (Hospitalization)
  Sender: FDA-Public Use
  Company Number: US-BRISTOL-MYERS SQUIBB COMPANY-15796790

PATIENT
  Age: 60 Year
  Sex: Male
  Weight: 95 kg

DRUGS (4)
  1. ZESTRIL [Concomitant]
     Route: 048
     Dates: start: 20030101
  2. PRILOSEC [Concomitant]
     Route: 048
     Dates: start: 20030101
  3. IPILIMUMAB [Suspect]
     Indication: MALIGNANT MELANOMA
     Route: 042
     Dates: start: 20110504, end: 20110707
  4. DECADRON [Concomitant]
     Dosage: TABLET
     Route: 048
     Dates: start: 20110301

REACTIONS (2)
  - PULMONARY EMBOLISM [None]
  - HEADACHE [None]
